FAERS Safety Report 6107978-9 (Version None)
Quarter: 2009Q1

REPORT INFORMATION
  Report Type: 
  Country: None (occurrence: None)
  Receive Date: 20090305
  Receipt Date: 20090305
  Transmission Date: 20090719
  Serious: Yes (Other)
  Sender: FDA-Public Use
  Company Number: None

PATIENT
  Sex: Female
  Weight: 95.709 kg

DRUGS (4)
  1. ABILIFY [Suspect]
  2. SEROQUEL [Suspect]
  3. ZOLOFT [Suspect]
  4. KLONOPIN [Suspect]

REACTIONS (2)
  - DYSKINESIA [None]
  - TONGUE DISORDER [None]
